FAERS Safety Report 9057583 (Version 1)
Quarter: 2013Q1

REPORT INFORMATION
  Report Type: Spontaneous
  Country: FR (occurrence: FR)
  Receive Date: 20130204
  Receipt Date: 20130204
  Transmission Date: 20140127
  Serious: Yes (Hospitalization)
  Sender: FDA-Public Use
  Company Number: FR-PFIZER INC-2013037640

PATIENT
  Age: 33 Year
  Sex: Female

DRUGS (4)
  1. CELEBREX [Suspect]
     Dosage: 200 MG, 1X/DAY
     Route: 048
     Dates: end: 20121025
  2. SALAZOPYRINE [Suspect]
     Dosage: 500 MG, 4X/DAY
     Route: 048
     Dates: end: 20121025
  3. TILCOTIL [Suspect]
     Dosage: 20 MG, 1X/DAY
     Route: 048
     Dates: start: 20121017, end: 20121025
  4. IXPRIM [Suspect]
     Dosage: 37.5 MG/325 MG ONCE DAILY
     Route: 048
     Dates: end: 20121020

REACTIONS (13)
  - Face oedema [Recovered/Resolved]
  - Rash [Recovered/Resolved]
  - General physical health deterioration [Unknown]
  - Asthenia [Unknown]
  - Nausea [Unknown]
  - Headache [Recovered/Resolved]
  - Chest pain [Unknown]
  - Abdominal pain [Unknown]
  - C-reactive protein increased [Unknown]
  - Leukopenia [Unknown]
  - Thrombocytopenia [Unknown]
  - Post lumbar puncture syndrome [Unknown]
  - Meningism [Recovered/Resolved]
